FAERS Safety Report 11982029 (Version 2)
Quarter: 2016Q1

REPORT INFORMATION
  Report Type: Report from Study
  Country: ID (occurrence: ID)
  Receive Date: 20160201
  Receipt Date: 20160226
  Transmission Date: 20160526
  Serious: Yes (Other)
  Sender: FDA-Public Use
  Company Number: ID-ROCHE-1701244

PATIENT
  Age: 52 Year
  Sex: Female

DRUGS (1)
  1. PEGASYS [Suspect]
     Active Substance: PEGINTERFERON ALFA-2A
     Indication: CHRONIC HEPATITIS C
     Route: 065

REACTIONS (8)
  - White blood cell count decreased [Unknown]
  - Headache [Recovered/Resolved]
  - Weight decreased [Unknown]
  - Aspartate aminotransferase increased [Unknown]
  - Mass [Unknown]
  - Pruritus [Recovering/Resolving]
  - Cough [Recovering/Resolving]
  - Red blood cell count decreased [Unknown]
